FAERS Safety Report 10257640 (Version 3)
Quarter: 2014Q4

REPORT INFORMATION
  Report Type: Spontaneous
  Country: JP (occurrence: JP)
  Receive Date: 20140625
  Receipt Date: 20141211
  Transmission Date: 20150528
  Serious: Yes (Other)
  Sender: FDA-Public Use
  Company Number: JP-ELI_LILLY_AND_COMPANY-JP201312002424

PATIENT
  Age: 70 Year
  Sex: Male

DRUGS (3)
  1. GEMCITABINE HYDROCHLORIDE. [Suspect]
     Active Substance: GEMCITABINE HYDROCHLORIDE
     Dosage: 600 MG/M2, UNK
     Route: 042
  2. GEMCITABINE HYDROCHLORIDE. [Suspect]
     Active Substance: GEMCITABINE HYDROCHLORIDE
     Indication: DUCTAL ADENOCARCINOMA OF PANCREAS
     Dosage: 1000 MG/M2, UNK
     Route: 042
  3. GEMCITABINE HYDROCHLORIDE. [Suspect]
     Active Substance: GEMCITABINE HYDROCHLORIDE
     Dosage: 800 MG/M2, UNK
     Route: 042

REACTIONS (11)
  - Febrile neutropenia [Recovering/Resolving]
  - Neutropenia [Unknown]
  - Back pain [Unknown]
  - Ileus paralytic [Recovering/Resolving]
  - Ascites [Unknown]
  - Thrombocytopenia [Recovering/Resolving]
  - Constipation [Unknown]
  - Thrombocytopenia [Unknown]
  - Peritonitis bacterial [Recovered/Resolved]
  - Anaemia [Unknown]
  - Abdominal pain [Unknown]
